FAERS Safety Report 23667776 (Version 3)
Quarter: 2024Q1

REPORT INFORMATION
  Report Type: Report from Study
  Country: KR (occurrence: KR)
  Receive Date: 20240325
  Receipt Date: 20240328
  Transmission Date: 20240409
  Serious: Yes (Death, Hospitalization, Other)
  Sender: FDA-Public Use
  Company Number: KR-ABBVIE-5689513

PATIENT
  Age: 39 Year
  Sex: Male
  Weight: 53 kg

DRUGS (17)
  1. RINVOQ [Suspect]
     Active Substance: UPADACITINIB
     Indication: Dermatitis atopic
     Route: 048
     Dates: start: 20230906, end: 20240308
  2. Seropram [Concomitant]
     Indication: Panic disorder
     Dosage: TAB 10MG
     Route: 048
     Dates: start: 20230906
  3. PROPRANOLOL HYDROCHLORIDE [Suspect]
     Active Substance: PROPRANOLOL HYDROCHLORIDE
     Indication: Panic disorder
     Dosage: TAB 40MG?DOSE: 0.5 DOSAGE FORM
     Route: 048
  4. PROPRANOLOL HYDROCHLORIDE [Suspect]
     Active Substance: PROPRANOLOL HYDROCHLORIDE
     Indication: Panic disorder
     Dosage: TAB 10MG
     Route: 048
     Dates: start: 20230906
  5. OLMESARTAN MEDOXOMIL [Concomitant]
     Active Substance: OLMESARTAN MEDOXOMIL
     Indication: Hypertension
     Dosage: TAB 10MG
     Route: 048
     Dates: start: 20231120
  6. OLMESARTAN MEDOXOMIL [Concomitant]
     Active Substance: OLMESARTAN MEDOXOMIL
     Indication: Hypertension
     Dosage: TAB 20MG
     Route: 048
     Dates: start: 20230925, end: 20231119
  7. ZANAPAM [Concomitant]
     Indication: Panic disorder
     Dosage: TAB 0.25MG
     Route: 048
  8. ZANAPAM [Concomitant]
     Indication: Panic disorder
     Dosage: TAB 0.125MG
     Route: 048
     Dates: start: 20230906
  9. CILOSTAZOL [Concomitant]
     Active Substance: CILOSTAZOL
     Indication: Hypertension
     Dosage: TAB 50MG
     Route: 048
     Dates: start: 20230906
  10. TRIAZOLAM [Concomitant]
     Active Substance: TRIAZOLAM
     Indication: Panic disorder
     Dosage: TAB 0.25MG
     Route: 048
     Dates: start: 20230906
  11. Myungin lithium carbonate [Concomitant]
     Indication: Panic disorder
     Dosage: TAB 300MG
     Route: 048
     Dates: start: 20230906
  12. DILTIAZEM HYDROCHLORIDE [Concomitant]
     Active Substance: DILTIAZEM HYDROCHLORIDE
     Indication: Hypertension
     Dosage: TAB 90MG, RETARD
     Route: 048
     Dates: start: 20230906
  13. LANSOPRAZOLE [Concomitant]
     Active Substance: LANSOPRAZOLE
     Indication: Hypertension
     Dosage: TAB 15MG
     Route: 048
     Dates: start: 20230906
  14. Youngpoong doxycycline [Concomitant]
     Indication: Dermatitis atopic
     Dosage: TAB 100MG
     Route: 048
     Dates: start: 20231115
  15. NICORANDIL [Concomitant]
     Active Substance: NICORANDIL
     Indication: Hypertension
     Dosage: TIME INTERVAL: 0.33333333 DAYS: TAB 5MG
     Route: 048
     Dates: start: 20230906
  16. RIVOTRIL [Concomitant]
     Active Substance: CLONAZEPAM
     Indication: Panic disorder
     Route: 048
     Dates: start: 20230906
  17. XANAX [Suspect]
     Active Substance: ALPRAZOLAM
     Indication: Product used for unknown indication
     Route: 065

REACTIONS (4)
  - Toxicity to various agents [Fatal]
  - Dizziness [Recovered/Resolved]
  - Cardiac arrest [Fatal]
  - Cardiac arrest [Recovered/Resolved]

NARRATIVE: CASE EVENT DATE: 20231121
